FAERS Safety Report 5120167-X (Version None)
Quarter: 2006Q4

REPORT INFORMATION
  Report Type: 
  Country: None (occurrence: None)
  Receive Date: 20061002
  Receipt Date: 20061002
  Transmission Date: 20070319
  Serious: Yes (Hospitalization)
  Sender: FDA-Public Use
  Company Number: None

PATIENT
  Age: 52 Year
  Sex: Male

DRUGS (1)
  1. ABACAVIR [Suspect]
     Indication: HIV INFECTION
     Dosage: 300 BID PO
     Route: 048
     Dates: start: 20060322, end: 20060401

REACTIONS (8)
  - AURICULAR SWELLING [None]
  - DIZZINESS [None]
  - EAR PAIN [None]
  - EOSINOPHIL COUNT INCREASED [None]
  - FACIAL PAIN [None]
  - HYPOACUSIS [None]
  - OEDEMA PERIPHERAL [None]
  - STEVENS-JOHNSON SYNDROME [None]
